FAERS Safety Report 11628779 (Version 4)
Quarter: 2016Q4

REPORT INFORMATION
  Report Type: Report from Study
  Country: UA (occurrence: UA)
  Receive Date: 20151014
  Receipt Date: 20161216
  Transmission Date: 20170206
  Serious: Yes (Death, Hospitalization, Other)
  Sender: FDA-Public Use
  Company Number: UA-BIOMARINAP-UA-2015-107704

PATIENT
  Age: 23 Year
  Sex: Female
  Weight: 32 kg

DRUGS (1)
  1. ALDURAZYME [Suspect]
     Active Substance: LARONIDASE
     Indication: MUCOPOLYSACCHARIDOSIS I
     Dosage: 100 IU/KG, QW
     Route: 042
     Dates: end: 20151005

REACTIONS (20)
  - Cardiac valve disease [Unknown]
  - Cardiac murmur [Unknown]
  - Asthenia [Unknown]
  - Cardiopulmonary failure [Fatal]
  - Crepitations [Unknown]
  - Dyspnoea at rest [Unknown]
  - Headache [Unknown]
  - Heart rate increased [Unknown]
  - Sinus tachycardia [Unknown]
  - Cardiac failure [Unknown]
  - Pneumonia [Unknown]
  - Glaucoma [Unknown]
  - Aortic stenosis [Unknown]
  - Hypertension [Unknown]
  - Aortic valve disease [Unknown]
  - Mitral valve disease mixed [Unknown]
  - Blood pressure increased [Unknown]
  - Tricuspid valve incompetence [Unknown]
  - Pulmonary hypertension [Unknown]
  - Oxygen saturation decreased [Unknown]
